FAERS Safety Report 7391187-X (Version None)
Quarter: 2011Q2

REPORT INFORMATION
  Report Type: 
  Country: None (occurrence: None)
  Receive Date: 20110404
  Receipt Date: 20100708
  Transmission Date: 20111010
  Serious: No
  Sender: FDA-Public Use
  Company Number: US-PFIZER INC-2010086399

PATIENT
  Sex: Male
  Weight: 74.83 kg

DRUGS (2)
  1. ZOLOFT [Suspect]
     Dosage: UNK
  2. ZOLOFT [Suspect]
     Indication: DEPRESSION
     Dosage: 100 MG, 1X/DAY
     Route: 048
     Dates: start: 20100401

REACTIONS (1)
  - DRUG SCREEN FALSE POSITIVE [None]
